FAERS Safety Report 18794159 (Version 1)
Quarter: 2021Q1

REPORT INFORMATION
  Report Type: Spontaneous
  Country: IT (occurrence: IT)
  Receive Date: 20210127
  Receipt Date: 20210127
  Transmission Date: 20210419
  Serious: Yes (Hospitalization, Other)
  Sender: FDA-Public Use
  Company Number: IT-SA-2021SA024100

PATIENT
  Age: 72 Year
  Sex: Female

DRUGS (2)
  1. ARGATROBAN. [Concomitant]
     Active Substance: ARGATROBAN
  2. ENOXAPARIN SODIUM. [Suspect]
     Active Substance: ENOXAPARIN SODIUM
     Indication: PROPHYLAXIS
     Dosage: 4000 IU, QD

REACTIONS (6)
  - Microembolism [Unknown]
  - Heparin-induced thrombocytopenia [Recovered/Resolved]
  - Deep vein thrombosis [Unknown]
  - Presyncope [Unknown]
  - Platelet count decreased [Recovered/Resolved]
  - Pulmonary embolism [Unknown]
